FAERS Safety Report 9697830 (Version 2)
Quarter: 2013Q4

REPORT INFORMATION
  Report Type: Spontaneous
  Country: JP (occurrence: JP)
  Receive Date: 20131120
  Receipt Date: 20131120
  Transmission Date: 20140711
  Serious: Yes (Other)
  Sender: FDA-Public Use
  Company Number: JP-ASTRAZENECA-2013SE78333

PATIENT
  Age: 68 Year
  Sex: Male

DRUGS (1)
  1. DIPRIVAN [Suspect]
     Indication: SEDATION
     Dosage: 4 MG/KG/H
     Route: 042
     Dates: start: 20131021, end: 20131021

REACTIONS (3)
  - Overdose [Unknown]
  - Convulsion [Recovered/Resolved]
  - Off label use [Unknown]
